FAERS Safety Report 9498258 (Version 1)
Quarter: 2013Q3

REPORT INFORMATION
  Report Type: Spontaneous
  Country: DE (occurrence: DE)
  Receive Date: 20130904
  Receipt Date: 20130904
  Transmission Date: 20140515
  Serious: Yes (Hospitalization)
  Sender: FDA-Public Use
  Company Number: DE-JNJFOC-20130900749

PATIENT
  Age: 72 Year
  Sex: Female
  Weight: 87 kg

DRUGS (3)
  1. XARELTO [Suspect]
     Indication: EMBOLISM ARTERIAL
     Route: 048
  2. XARELTO [Suspect]
     Indication: ATRIAL FIBRILLATION
     Route: 048
  3. XARELTO [Suspect]
     Indication: CEREBROVASCULAR ACCIDENT PROPHYLAXIS
     Route: 048

REACTIONS (4)
  - Erysipelas [Unknown]
  - Lymphoedema [Unknown]
  - Arthralgia [Unknown]
  - Haematoma [Unknown]
